FAERS Safety Report 19286595 (Version 2)
Quarter: 2021Q4

REPORT INFORMATION
  Report Type: Spontaneous
  Country: US (occurrence: None)
  Receive Date: 20210521
  Receipt Date: 20211207
  Transmission Date: 20220303
  Serious: Yes (Other)
  Sender: FDA-Public Use
  Company Number: 2021A427252

PATIENT
  Age: 65 Year
  Sex: Male
  Weight: 63.5 kg

DRUGS (55)
  1. NEXIUM [Suspect]
     Active Substance: ESOMEPRAZOLE MAGNESIUM
     Indication: Gastrooesophageal reflux disease
     Route: 048
     Dates: start: 2004, end: 2018
  2. NEXIUM [Suspect]
     Active Substance: ESOMEPRAZOLE MAGNESIUM
     Indication: Gastrooesophageal reflux disease
     Route: 048
     Dates: start: 2004, end: 2018
  3. NEXIUM [Suspect]
     Active Substance: ESOMEPRAZOLE MAGNESIUM
     Indication: Gastrooesophageal reflux disease
     Dosage: GENERIC
     Route: 065
     Dates: start: 2015
  4. NEXIUM [Suspect]
     Active Substance: ESOMEPRAZOLE MAGNESIUM
     Indication: Gastrooesophageal reflux disease
     Dosage: GENERIC
     Route: 065
     Dates: start: 2015
  5. PRILOSEC OTC [Suspect]
     Active Substance: OMEPRAZOLE MAGNESIUM
     Indication: Gastrooesophageal reflux disease
     Route: 048
     Dates: start: 2004, end: 2018
  6. PRILOSEC OTC [Suspect]
     Active Substance: OMEPRAZOLE MAGNESIUM
     Indication: Gastrooesophageal reflux disease
     Route: 048
     Dates: start: 2004, end: 2018
  7. PROTONIX [Suspect]
     Active Substance: PANTOPRAZOLE SODIUM
     Indication: Gastrooesophageal reflux disease
     Route: 065
     Dates: start: 2004, end: 2018
  8. PROTONIX [Suspect]
     Active Substance: PANTOPRAZOLE SODIUM
     Indication: Gastrooesophageal reflux disease
     Route: 065
     Dates: start: 2004, end: 2018
  9. PROTONIX [Suspect]
     Active Substance: PANTOPRAZOLE SODIUM
     Indication: Gastrooesophageal reflux disease
     Dosage: GENERIC
     Route: 065
     Dates: start: 2015, end: 2018
  10. PROTONIX [Suspect]
     Active Substance: PANTOPRAZOLE SODIUM
     Indication: Gastrooesophageal reflux disease
     Dosage: GENERIC
     Route: 065
     Dates: start: 2015, end: 2018
  11. CELECOXIB [Concomitant]
     Active Substance: CELECOXIB
     Indication: Antiinflammatory therapy
     Dates: start: 2015, end: 2016
  12. DICLOFENAC [Concomitant]
     Active Substance: DICLOFENAC
     Indication: Antiinflammatory therapy
     Dates: start: 201207, end: 201210
  13. MELOXICAM [Concomitant]
     Active Substance: MELOXICAM
     Indication: Antiinflammatory therapy
     Dates: start: 201503
  14. NAPROXEN [Concomitant]
     Active Substance: NAPROXEN
     Indication: Antiinflammatory therapy
     Dates: start: 200706
  15. TRAMADOL [Concomitant]
     Active Substance: TRAMADOL
     Indication: Pain
     Dates: start: 2017, end: 2020
  16. CIPROFLOXACIN [Concomitant]
     Active Substance: CIPROFLOXACIN
     Indication: Infection
     Dates: start: 201006
  17. CIPROFLOXACIN [Concomitant]
     Active Substance: CIPROFLOXACIN
     Indication: Infection
     Dates: start: 202009
  18. CIPROFLOXACIN [Concomitant]
     Active Substance: CIPROFLOXACIN
     Indication: Infection
     Dates: start: 200909
  19. DOXYCYCLINE [Concomitant]
     Active Substance: DOXYCYCLINE
     Indication: Infection
     Dates: start: 202101
  20. DOXYCYCLINE [Concomitant]
     Active Substance: DOXYCYCLINE
     Indication: Infection
     Dates: start: 200602
  21. LEVAQUIN [Concomitant]
     Active Substance: LEVOFLOXACIN
     Indication: Infection
     Dates: start: 200510
  22. LEVAQUIN [Concomitant]
     Active Substance: LEVOFLOXACIN
     Indication: Infection
     Dates: start: 200602
  23. TETRACYCLINE/DIPHENHYDRAMINE HYDROCHLORIDE/NYSTATIN/CHLORPHENAMINE/2-D [Concomitant]
     Indication: Infection
     Dates: start: 200406
  24. TETRACYCLINE/DIPHENHYDRAMINE HYDROCHLORIDE/NYSTATIN/CHLORPHENAMINE/2-D [Concomitant]
     Indication: Infection
     Dates: start: 200602
  25. LOVASTATIN [Concomitant]
     Active Substance: LOVASTATIN
     Indication: Blood cholesterol increased
     Dates: start: 2004, end: 2005
  26. CRESTOR [Concomitant]
     Active Substance: ROSUVASTATIN CALCIUM
     Indication: Blood cholesterol increased
     Dates: start: 2006, end: 200702
  27. ZOCOR [Concomitant]
     Active Substance: SIMVASTATIN
     Indication: Blood cholesterol increased
     Dates: start: 200406
  28. ALLOPURINOL [Concomitant]
     Active Substance: ALLOPURINOL
     Indication: Hypertension
     Dates: start: 2016, end: 2017
  29. ALLOPURINOL [Concomitant]
     Active Substance: ALLOPURINOL
     Indication: Hypertension
     Dates: start: 2019
  30. AMITRIPTYLINE [Concomitant]
     Active Substance: AMITRIPTYLINE
     Indication: Depression
     Dates: start: 2004
  31. AMITRIPTYLINE [Concomitant]
     Active Substance: AMITRIPTYLINE
     Indication: Depression
     Dates: start: 2017
  32. IBUPROFEN [Concomitant]
     Active Substance: IBUPROFEN
     Indication: Pain
  33. ACETAMINOPHEN [Concomitant]
     Active Substance: ACETAMINOPHEN
     Indication: Pain
  34. CIMETIDINE [Concomitant]
     Active Substance: CIMETIDINE
  35. TAGAMET [Concomitant]
     Active Substance: CIMETIDINE
  36. EPHEDRA SPP./ZINGIBER OFFICINALE RHIZOME/PAULLINIA CUPANA/SALIX ALBA B [Concomitant]
  37. ESZOPICLONE [Concomitant]
     Active Substance: ESZOPICLONE
  38. TAMSULOSIN [Concomitant]
     Active Substance: TAMSULOSIN
  39. FINASTERIDE [Concomitant]
     Active Substance: FINASTERIDE
  40. AMITRIPTYLINE [Concomitant]
     Active Substance: AMITRIPTYLINE
  41. ULORIC [Concomitant]
     Active Substance: FEBUXOSTAT
  42. OXYBUTYNIN [Concomitant]
     Active Substance: OXYBUTYNIN
  43. COLCHICINE [Concomitant]
     Active Substance: COLCHICINE
  44. COLCRYS [Concomitant]
     Active Substance: COLCHICINE
  45. CYCLOBENZAPRINE [Concomitant]
     Active Substance: CYCLOBENZAPRINE
  46. BACLOFEN [Concomitant]
     Active Substance: BACLOFEN
  47. TEMAZEPAM [Concomitant]
     Active Substance: TEMAZEPAM
  48. SYNTHROID [Concomitant]
     Active Substance: LEVOTHYROXINE SODIUM
  49. NEURONTIN [Concomitant]
     Active Substance: GABAPENTIN
  50. METRONIDAZOLE [Concomitant]
     Active Substance: METRONIDAZOLE
  51. TETRACYCLINE [Concomitant]
     Active Substance: TETRACYCLINE
  52. PENICILLIN [Concomitant]
     Active Substance: PENICILLIN
  53. FLOMAX [Concomitant]
     Active Substance: TAMSULOSIN HYDROCHLORIDE
  54. CARISOPRODOL [Concomitant]
     Active Substance: CARISOPRODOL
  55. PSYLLIUM [Concomitant]
     Active Substance: PLANTAGO SEED

REACTIONS (3)
  - Chronic kidney disease [Not Recovered/Not Resolved]
  - Acute kidney injury [Not Recovered/Not Resolved]
  - Gastrooesophageal reflux disease [Not Recovered/Not Resolved]

NARRATIVE: CASE EVENT DATE: 20160101
